FAERS Safety Report 6428907-4 (Version None)
Quarter: 2009Q4

REPORT INFORMATION
  Report Type: 
  Country: None (occurrence: None)
  Receive Date: 20091104
  Receipt Date: 20091104
  Transmission Date: 20100525
  Serious: Yes (Hospitalization)
  Sender: FDA-Public Use
  Company Number: None

PATIENT
  Age: 22 Year
  Sex: Female
  Weight: 43.5453 kg

DRUGS (1)
  1. REYATAZ [Suspect]
     Indication: HIV TEST POSITIVE
     Dosage: 300MG DAILY, PO
     Route: 048
     Dates: start: 20060227, end: 20091022

REACTIONS (3)
  - ABDOMINAL PAIN LOWER [None]
  - NAUSEA [None]
  - URINE OUTPUT DECREASED [None]
